FAERS Safety Report 4350960-2 (Version None)
Quarter: 2004Q2

REPORT INFORMATION
  Report Type: 
  Country: None (occurrence: None)
  Receive Date: 20040427
  Receipt Date: 20040414
  Transmission Date: 20050107
  Serious: Yes (Death, Hospitalization, Other)
  Sender: FDA-Public Use
  Company Number: US-SHR-03-005675

PATIENT
  Age: 46 Year
  Sex: Male
  Weight: 87.9 kg

DRUGS (14)
  1. FLUDARA [Suspect]
     Indication: NON-HODGKIN'S LYMPHOMA
     Dosage: 25 MG/M2/DAYS 2-4, INTRAVENOUS
     Route: 042
     Dates: start: 20030121, end: 20030123
  2. MITOXANTRONE [Suspect]
     Indication: NON-HODGKIN'S LYMPHOMA
     Dosage: 10 MG/M2, 1 DOSE, INTRAVENOUS
     Route: 042
     Dates: start: 20030120, end: 20030120
  3. DEXAMETHASONE [Suspect]
     Dosage: 20 MG/D,
     Dates: start: 20030121, end: 20030126
  4. RITUXAN [Suspect]
     Dosage: 5 DOSES RANGED FROM 100-730 ,
     Dates: start: 20030217, end: 20030314
  5. K-TAB [Concomitant]
  6. DIFLUCAN [Concomitant]
  7. PREDNISONE [Concomitant]
  8. ATROPINE (EYE DROPS) (ATROPINE) [Concomitant]
  9. PREDNISONE (EYE DROPS) [Concomitant]
  10. LISINOPRIL [Concomitant]
  11. PREVACID [Concomitant]
  12. GLYBURIDE [Concomitant]
  13. LISINOPRIL [Concomitant]
  14. MAGNESIUM OXIDE (MAGNESIUM OXIDE) [Concomitant]

REACTIONS (22)
  - ACTIVATED PARTIAL THROMBOPLASTIN TIME PROLONGED [None]
  - BONE MARROW DEPRESSION [None]
  - BRONCHOPULMONARY ASPERGILLOSIS [None]
  - DRUG INEFFECTIVE [None]
  - FEBRILE NEUTROPENIA [None]
  - HAEMATURIA [None]
  - HAEMOLYTIC ANAEMIA [None]
  - HEPARIN-INDUCED THROMBOCYTOPENIA [None]
  - HYPERCOAGULATION [None]
  - INFLAMMATION [None]
  - INTERNATIONAL NORMALISED RATIO DECREASED [None]
  - LUNG DISORDER [None]
  - MALIGNANT NEOPLASM PROGRESSION [None]
  - NEPHROLITHIASIS [None]
  - PANCYTOPENIA [None]
  - PNEUMONIA [None]
  - POST PROCEDURAL HAEMORRHAGE [None]
  - PROTHROMBIN LEVEL DECREASED [None]
  - PULMONARY ARTERY THROMBOSIS [None]
  - PULMONARY EMBOLISM [None]
  - PULMONARY HAEMORRHAGE [None]
  - PULMONARY HILUM MASS [None]
